FAERS Safety Report 5061061-2 (Version None)
Quarter: 2006Q3

REPORT INFORMATION
  Report Type: 
  Country: None (occurrence: None)
  Receive Date: 20060719
  Receipt Date: 20060719
  Transmission Date: 20061208
  Serious: Yes (Disabling)
  Sender: FDA-Public Use
  Company Number: None

PATIENT
  Age: 39 Year
  Sex: Male
  Weight: 91.7 kg

DRUGS (9)
  1. VANCOMYCIN [Suspect]
     Indication: CELLULITIS
     Dosage: 1000MG BID IV
     Route: 042
     Dates: start: 20060522, end: 20060526
  2. VANCOMYCIN [Suspect]
     Dosage: 1000 MG TID IV
     Route: 042
     Dates: start: 20060527, end: 20060606
  3. ZOSYN [Concomitant]
  4. MUCOMYST [Concomitant]
  5. APAP TAB [Concomitant]
  6. MG OX [Concomitant]
  7. FLUCONAZOLE [Concomitant]
  8. BISACODYL [Concomitant]
  9. LOVENOX [Concomitant]

REACTIONS (1)
  - DEAFNESS [None]
